FAERS Safety Report 17580546 (Version 1)
Quarter: 2020Q1

REPORT INFORMATION
  Report Type: Spontaneous
  Country: US (occurrence: US)
  Receive Date: 20200321
  Receipt Date: 20200321
  Transmission Date: 20200409
  Serious: No
  Sender: FDA-Public Use
  Company Number: None

PATIENT
  Age: 62 Year
  Sex: Male

DRUGS (2)
  1. GENGRAF [Suspect]
     Active Substance: CYCLOSPORINE
     Indication: CHRONIC KIDNEY DISEASE
     Route: 048
     Dates: start: 201501
  2. BRILINTA [Concomitant]
     Active Substance: TICAGRELOR

REACTIONS (2)
  - Dyspnoea [None]
  - Drug interaction [None]

NARRATIVE: CASE EVENT DATE: 20200321
